FAERS Safety Report 26190244 (Version 1)
Quarter: 2025Q4

REPORT INFORMATION
  Report Type: Spontaneous
  Country: IR (occurrence: IR)
  Receive Date: 20251223
  Receipt Date: 20251223
  Transmission Date: 20260117
  Serious: Yes (Death, Other)
  Sender: UNICHEM
  Company Number: IR-UNICHEM LABORATORIES LIMITED-UNI-2025-IR-004262

PATIENT

DRUGS (2)
  1. METRONIDAZOLE [Suspect]
     Active Substance: METRONIDAZOLE
     Indication: Gastroenteritis
     Dosage: UNK
     Route: 065
  2. ONDANSENTRON [Concomitant]
     Indication: Gastroenteritis
     Dosage: UNK
     Route: 065

REACTIONS (2)
  - Depressed level of consciousness [Fatal]
  - Acute hepatic failure [Fatal]
